FAERS Safety Report 5139338-1 (Version None)
Quarter: 2006Q4

REPORT INFORMATION
  Report Type: 
  Country: None (occurrence: None)
  Receive Date: 20061024
  Receipt Date: 20061009
  Transmission Date: 20070319
  Serious: Yes (Death, Other)
  Sender: FDA-Public Use
  Company Number: 227963

PATIENT
  Sex: 0

DRUGS (4)
  1. AVASTIN [Suspect]
     Indication: NEOPLASM MALIGNANT
  2. FLUOROURACIL [Suspect]
     Indication: NEOPLASM MALIGNANT
  3. HYDROXYUREA [Suspect]
     Indication: NEOPLASM MALIGNANT
  4. RADIOTHERAPY (RADIATION THERAPY) [Suspect]
     Indication: NEOPLASM MALIGNANT

REACTIONS (3)
  - CEREBROVASCULAR ACCIDENT [None]
  - PNEUMONIA [None]
  - SEPSIS [None]
